FAERS Safety Report 20096614 (Version 2)
Quarter: 2021Q4

REPORT INFORMATION
  Report Type: Spontaneous
  Country: GB (occurrence: GB)
  Receive Date: 20211122
  Receipt Date: 20211203
  Transmission Date: 20220303
  Serious: Yes (Hospitalization, Other)
  Sender: FDA-Public Use
  Company Number: None

PATIENT
  Age: 79 Year
  Sex: Female
  Weight: 54 kg

DRUGS (5)
  1. ATORVASTATIN [Suspect]
     Active Substance: ATORVASTATIN
     Route: 065
  2. BISOPROLOL [Suspect]
     Active Substance: BISOPROLOL
     Route: 065
  3. FUROSEMIDE [Suspect]
     Active Substance: FUROSEMIDE
     Route: 065
  4. DAPAGLIFLOZIN [Suspect]
     Active Substance: DAPAGLIFLOZIN
     Route: 065
  5. RAMIPRIL [Concomitant]
     Active Substance: RAMIPRIL

REACTIONS (7)
  - Left ventricular dysfunction [Unknown]
  - Arteriosclerosis [Unknown]
  - Suspected COVID-19 [Unknown]
  - Cardiomyopathy [Unknown]
  - Fatigue [Unknown]
  - Chest pain [Unknown]
  - Dyspnoea [Unknown]

NARRATIVE: CASE EVENT DATE: 20210601
